FAERS Safety Report 7254429-7 (Version None)
Quarter: 2011Q1

REPORT INFORMATION
  Report Type: 
  Country: None (occurrence: None)
  Receive Date: 20110129
  Receipt Date: 20100407
  Transmission Date: 20110831
  Serious: No
  Sender: FDA-Public Use
  Company Number: US-ABBOTT-10P-163-0638455-00

PATIENT
  Sex: Female

DRUGS (5)
  1. HYDROXYQUINOLINE [Concomitant]
     Indication: PRODUCT USED FOR UNKNOWN INDICATION
  2. ADVAIR [Concomitant]
     Indication: RESPIRATORY DISORDER
  3. ADVAIR [Concomitant]
     Indication: ASTHMA
  4. UNKNOWN NASAL SPRAY [Concomitant]
     Indication: SEASONAL ALLERGY
     Route: 045
  5. HUMIRA [Suspect]
     Indication: RHEUMATOID ARTHRITIS

REACTIONS (11)
  - SNEEZING [None]
  - MYALGIA [None]
  - BONE PAIN [None]
  - BACK PAIN [None]
  - ARTHRALGIA [None]
  - PAIN IN EXTREMITY [None]
  - GENERALISED OEDEMA [None]
  - CHILLS [None]
  - RHINORRHOEA [None]
  - GAIT DISTURBANCE [None]
  - SWELLING FACE [None]
